FAERS Safety Report 12532314 (Version 1)
Quarter: 2016Q3

REPORT INFORMATION
  Report Type: Report from Study
  Country: JP (occurrence: JP)
  Receive Date: 20160706
  Receipt Date: 20160706
  Transmission Date: 20161109
  Serious: Yes (Death)
  Sender: FDA-Public Use
  Company Number: JP-SA-2016SA123528

PATIENT
  Age: 57 Year
  Sex: Female
  Weight: 53.3 kg

DRUGS (14)
  1. TRICHLORMETHIAZIDE [Concomitant]
     Active Substance: TRICHLORMETHIAZIDE
     Dates: end: 20121016
  2. PLAVIX [Suspect]
     Active Substance: CLOPIDOGREL BISULFATE
     Route: 065
     Dates: start: 20120309, end: 20130203
  3. PLAVIX [Suspect]
     Active Substance: CLOPIDOGREL BISULFATE
     Route: 065
     Dates: end: 20120308
  4. STICK ZENOL [Concomitant]
     Dates: start: 20120416, end: 20120423
  5. TELMISARTAN. [Concomitant]
     Active Substance: TELMISARTAN
     Dates: end: 20121016
  6. OFLOXACIN. [Concomitant]
     Active Substance: OFLOXACIN
     Dates: start: 20120427, end: 20120607
  7. MICOMBI [Concomitant]
     Active Substance: HYDROCHLOROTHIAZIDE\TELMISARTAN
     Dates: start: 20121017, end: 20130203
  8. PIMURO [Concomitant]
     Dates: end: 20130203
  9. LOXONIN [Concomitant]
     Active Substance: LOXOPROFEN SODIUM
     Dosage: TAPE
     Dates: start: 20120828, end: 20120914
  10. METHYCOBAL [Concomitant]
     Active Substance: METHYLCOBALAMIN
     Dates: start: 20121214, end: 20121221
  11. LACTEC [Concomitant]
     Active Substance: CALCIUM CHLORIDE ANHYDROUS\POTASSIUM CHLORIDE\SODIUM CHLORIDE\SODIUM LACTATE
     Dates: start: 20130203, end: 20130203
  12. SOLDEM 1 [Concomitant]
     Active Substance: DEXTROSE\SODIUM CHLORIDE\SODIUM LACTATE
     Dosage: FLUID SOLUTION 500 ML
     Dates: start: 20130203, end: 20130203
  13. BOSMIN [Concomitant]
     Active Substance: EPINEPHRINE
     Dosage: 1 MG 0.1% 1ML
     Dates: start: 20130203, end: 20130203
  14. MEYLON [Concomitant]
     Active Substance: SODIUM BICARBONATE
     Dosage: 84 8.4% 250 ML
     Dates: start: 20130203, end: 20130203

REACTIONS (2)
  - Vertigo positional [Recovered/Resolved]
  - Ventricular fibrillation [Fatal]

NARRATIVE: CASE EVENT DATE: 20121130
